FAERS Safety Report 5744845-4 (Version None)
Quarter: 2008Q2

REPORT INFORMATION
  Report Type: 
  Country: None (occurrence: None)
  Receive Date: 20080516
  Receipt Date: 20080501
  Transmission Date: 20081010
  Serious: Yes (Hospitalization)
  Sender: FDA-Public Use
  Company Number: 2008001032

PATIENT
  Age: 55 Year
  Sex: Female
  Weight: 69.4 kg

DRUGS (11)
  1. ERLOTINIB (ERLOTINIB) (TABLET) (ERLOTINIB) [Suspect]
     Indication: HEAD AND NECK CANCER
     Dosage: (150 MG,QD), ORAL
     Route: 048
     Dates: start: 20080128
  2. CISPLATIN [Suspect]
     Indication: HEAD AND NECK CANCER
     Dosage: (100 MG/M2, Q3W),I NTRAVENOUS
     Route: 042
     Dates: start: 20080128
  3. SYMBAX [Concomitant]
  4. AMBIEN [Concomitant]
  5. ATIVAN [Concomitant]
  6. ROXICET [Concomitant]
  7. GLUCOVANCE [Concomitant]
  8. DILAUDID [Concomitant]
  9. FENTANYL [Concomitant]
  10. COMPAZINE [Concomitant]
  11. NEXIUM [Concomitant]

REACTIONS (8)
  - ANAEMIA [None]
  - BLOOD CHLORIDE DECREASED [None]
  - CELLULITIS [None]
  - DRUG INTOLERANCE [None]
  - HYPOMAGNESAEMIA [None]
  - NAUSEA [None]
  - PAIN [None]
  - VOMITING [None]
